FAERS Safety Report 5121694-1 (Version None)
Quarter: 2006Q4

REPORT INFORMATION
  Report Type: 
  Country: None (occurrence: None)
  Receive Date: 20061006
  Receipt Date: 20060914
  Transmission Date: 20070319
  Serious: Yes (Hospitalization)
  Sender: FDA-Public Use
  Company Number: FR-GLAXOSMITHKLINE-B0439160A

PATIENT
  Age: 79 Year
  Sex: Female

DRUGS (10)
  1. ARIXTRA [Suspect]
     Indication: THROMBOSIS PROPHYLAXIS
     Dosage: 2.5MG PER DAY
     Route: 058
     Dates: start: 20060101, end: 20060101
  2. PLAVIX [Concomitant]
     Indication: TRANSIENT ISCHAEMIC ATTACK
     Dosage: 7.5MG PER DAY
     Dates: start: 20050101, end: 20060101
  3. LEVOTHYROXINE SODIUM [Concomitant]
     Dosage: 75MCG PER DAY
  4. COAPROVEL [Concomitant]
     Dosage: 150MG PER DAY
  5. ZOPICLONE [Concomitant]
     Dosage: 7.5MG PER DAY
  6. OMACOR [Concomitant]
  7. LANZOR [Concomitant]
     Dosage: 15MG PER DAY
  8. PRAVASTATIN [Concomitant]
  9. ACETAMINOPHEN AND TRAMADOL HCL [Concomitant]
     Indication: PAIN
  10. LACTULOSE [Concomitant]

REACTIONS (2)
  - ANAEMIA [None]
  - THROMBOCYTHAEMIA [None]
